FAERS Safety Report 8503318-6 (Version None)
Quarter: 2012Q2

REPORT INFORMATION
  Report Type: 
  Country: None (occurrence: None)
  Receive Date: 20120405
  Receipt Date: 20101117
  Transmission Date: 20120825
  Serious: Yes (Other)
  Sender: FDA-Public Use
  Company Number: PHEH2009US17518

PATIENT
  Age: 82 Year
  Sex: Female

DRUGS (2)
  1. RECLAST [Suspect]
     Dosage: ., INFUSION
     Dates: start: 20090915
  2. MULTIVITAMINS (ASCORBIC ACID, ERGOCALCIFEROL, FOLIC ACID, NICOTINAMIDE [Concomitant]

REACTIONS (15)
  - TOOTH LOSS [None]
  - TOOTH REPAIR [None]
  - GINGIVITIS [None]
  - JAW DISORDER [None]
  - NECK PAIN [None]
  - PAIN [None]
  - PAIN IN EXTREMITY [None]
  - TOOTH FRACTURE [None]
  - CHEST PAIN [None]
  - ARTHRALGIA [None]
  - GAIT DISTURBANCE [None]
  - GINGIVAL SWELLING [None]
  - DRUG INEFFECTIVE [None]
  - DENTAL CARIES [None]
  - INSOMNIA [None]
